FAERS Safety Report 7244170-9 (Version None)
Quarter: 2011Q1

REPORT INFORMATION
  Report Type: 
  Country: None (occurrence: None)
  Receive Date: 20110119
  Receipt Date: 20110119
  Transmission Date: 20110831
  Serious: Yes (Disabling, Other)
  Sender: FDA-Public Use
  Company Number: None

PATIENT
  Age: 59 Year
  Sex: Female
  Weight: 65.7716 kg

DRUGS (2)
  1. TRIAD ALCOHOL PREP PAD ANTISEPTIC TRIAD DISPOSABLES INC. [Suspect]
     Dosage: ONE SWAB DAILY YEARS
  2. TRIAD ALCOHOL PREP PAD ANTISEPTIC TRIAD DISPOSABLES INC. [Suspect]

REACTIONS (4)
  - ERYTHEMA [None]
  - PRODUCT CONTAMINATION [None]
  - PAIN IN EXTREMITY [None]
  - INFECTION [None]
